FAERS Safety Report 5490926-2 (Version None)
Quarter: 2007Q4

REPORT INFORMATION
  Report Type: 
  Country: None (occurrence: None)
  Receive Date: 20071019
  Receipt Date: 20071008
  Transmission Date: 20080405
  Serious: Yes (Other)
  Sender: FDA-Public Use
  Company Number: US-PFIZER INC-2007087249

PATIENT
  Sex: Female

DRUGS (2)
  1. CHANTIX [Suspect]
     Indication: EX-SMOKER
     Route: 048
  2. ALCOHOL [Interacting]

REACTIONS (5)
  - ABNORMAL DREAMS [None]
  - AGITATION [None]
  - ANGER [None]
  - DRUG INTERACTION [None]
  - UNDERDOSE [None]
